FAERS Safety Report 24320969 (Version 1)
Quarter: 2024Q3

REPORT INFORMATION
  Report Type: Report from Study
  Country: CA (occurrence: CA)
  Receive Date: 20240915
  Receipt Date: 20240915
  Transmission Date: 20241017
  Serious: Yes (Hospitalization)
  Sender: ABBVIE
  Company Number: CA-JNJFOC-20240824136

PATIENT
  Sex: Male

DRUGS (1)
  1. IMBRUVICA [Suspect]
     Active Substance: IBRUTINIB
     Indication: Chronic lymphocytic leukaemia refractory
     Dosage: 3X140 MG
     Route: 048
     Dates: start: 202104

REACTIONS (2)
  - Cerebral haemorrhage [Recovered/Resolved]
  - Decreased immune responsiveness [Unknown]
